FAERS Safety Report 9344600 (Version 1)
Quarter: 2013Q2

REPORT INFORMATION
  Report Type: Spontaneous
  Country: GB (occurrence: GB)
  Receive Date: 20130612
  Receipt Date: 20130612
  Transmission Date: 20140414
  Serious: Yes (Other)
  Sender: FDA-Public Use
  Company Number: GB-TEVA-410794ISR

PATIENT
  Age: 70 Year
  Sex: Male
  Weight: 72.5 kg

DRUGS (5)
  1. SIMVASTATIN [Suspect]
     Indication: LOW DENSITY LIPOPROTEIN INCREASED
     Dosage: 20 MILLIGRAM DAILY;
     Route: 048
     Dates: start: 20120928, end: 20130317
  2. ATORVASTATIN [Suspect]
     Indication: LOW DENSITY LIPOPROTEIN INCREASED
     Dosage: 10 MILLIGRAM DAILY;
     Route: 048
     Dates: start: 20130317, end: 20130517
  3. OMEPRAZOLE [Concomitant]
  4. AMLODIPINE [Concomitant]
  5. DOXAZOSIN MESILATE [Concomitant]

REACTIONS (6)
  - Myalgia [Recovering/Resolving]
  - Neuralgia [Recovering/Resolving]
  - Contusion [Unknown]
  - Muscle spasms [Unknown]
  - Neck pain [Unknown]
  - Pain [Unknown]
